FAERS Safety Report 7719188-X (Version None)
Quarter: 2011Q3

REPORT INFORMATION
  Report Type: 
  Country: None (occurrence: None)
  Receive Date: 20110830
  Receipt Date: 20110818
  Transmission Date: 20111222
  Serious: Yes (Other)
  Sender: FDA-Public Use
  Company Number: PHEH2011US01871

PATIENT
  Age: 41 Year
  Sex: Male
  Weight: 120 kg

DRUGS (9)
  1. LOPRESSOR [Suspect]
     Indication: HYPERTENSION
     Dosage: UNK
  2. LYRICA [Suspect]
     Indication: NEURALGIA
     Dosage: 75 MG, BID
     Route: 048
     Dates: start: 20110201, end: 20110401
  3. ZANTAC [Concomitant]
     Dosage: 150 MG, UNK
  4. OMEPRAZOLE [Concomitant]
     Dosage: 40 MG, UNK
  5. LISINOPRIL [Suspect]
     Indication: BLOOD PRESSURE
     Dosage: UNK UKN, UNK
  6. MORPHINE [Concomitant]
     Dosage: 60 MG, TID
  7. LORTAB [Concomitant]
     Indication: PAIN
     Dosage: UNK UKN, UNK
  8. PAMELOR [Suspect]
     Dosage: UNK
     Dates: start: 20110401, end: 20110501
  9. NEURONTIN [Suspect]
     Indication: NEURALGIA
     Dosage: 300 MG, 1 IN MORNING, 2 AT NIGHT
     Route: 048
     Dates: start: 20110101, end: 20110201

REACTIONS (10)
  - AGITATION [None]
  - DIZZINESS [None]
  - TINNITUS [None]
  - CONJUNCTIVAL PALLOR [None]
  - OCULAR ICTERUS [None]
  - VISION BLURRED [None]
  - BLOOD TRIGLYCERIDES INCREASED [None]
  - PERSONALITY DISORDER [None]
  - MOOD SWINGS [None]
  - DEPRESSION [None]
